FAERS Safety Report 17151599 (Version 1)
Quarter: 2019Q4

REPORT INFORMATION
  Report Type: Spontaneous
  Country: US (occurrence: US)
  Receive Date: 20191212
  Receipt Date: 20191212
  Transmission Date: 20200122
  Serious: Yes (Other)
  Sender: FDA-Public Use
  Company Number: None

PATIENT
  Age: 28 Year
  Sex: Female
  Weight: 76.5 kg

DRUGS (11)
  1. WELLBUTRIN [Concomitant]
     Active Substance: BUPROPION HYDROCHLORIDE
  2. OMEPRAZOLE. [Concomitant]
     Active Substance: OMEPRAZOLE
  3. NEXPLANON [Concomitant]
     Active Substance: ETONOGESTREL
  4. WOMEN^S MULTIVITAMIN [Concomitant]
  5. MELATONIN [Concomitant]
     Active Substance: MELATONIN
  6. EMGALITY [Suspect]
     Active Substance: GALCANEZUMAB-GNLM
     Indication: MIGRAINE
     Dosage: ?          QUANTITY:1 INJECTION(S);OTHER FREQUENCY:MONTHLY;?
     Route: 058
     Dates: start: 20190911
  7. LORAZEPAM. [Concomitant]
     Active Substance: LORAZEPAM
  8. TOPIRAMATE. [Concomitant]
     Active Substance: TOPIRAMATE
  9. NORETHINDRONE. [Concomitant]
     Active Substance: NORETHINDRONE
  10. RELPAX [Concomitant]
     Active Substance: ELETRIPTAN HYDROBROMIDE
  11. MAGNESIUM [Concomitant]
     Active Substance: MAGNESIUM

REACTIONS (2)
  - Aura [None]
  - Migraine [None]

NARRATIVE: CASE EVENT DATE: 20190923
